FAERS Safety Report 10791523 (Version 1)
Quarter: 2015Q1

REPORT INFORMATION
  Report Type: Spontaneous
  Country: US (occurrence: US)
  Receive Date: 20150213
  Receipt Date: 20150213
  Transmission Date: 20150721
  Serious: No
  Sender: FDA-Public Use
  Company Number: US-GLAXOSMITHKLINE-A1083665A

PATIENT

DRUGS (1)
  1. EQUATE NICOTINE [Suspect]
     Active Substance: NICOTINE
     Indication: EX-TOBACCO USER
     Route: 062
     Dates: start: 20140718, end: 20140728

REACTIONS (4)
  - Application site exfoliation [Recovered/Resolved]
  - Scar [Recovered/Resolved]
  - Application site pain [Recovered/Resolved]
  - Application site scar [Recovered/Resolved]
